FAERS Safety Report 10192975 (Version 1)
Quarter: 2014Q2

REPORT INFORMATION
  Report Type: Spontaneous
  Country: US (occurrence: US)
  Receive Date: 20140523
  Receipt Date: 20140523
  Transmission Date: 20141212
  Serious: Yes (Other)
  Sender: FDA-Public Use
  Company Number: US-ABBVIE-14P-163-1238673-00

PATIENT
  Age: 47 Year
  Sex: Female

DRUGS (4)
  1. BIAXIN [Suspect]
     Indication: PRODUCT USED FOR UNKNOWN INDICATION
  2. ADVAIR DISKUS [Suspect]
     Indication: PRODUCT USED FOR UNKNOWN INDICATION
     Dosage: MULTI DOSE POWDER INHALER/ 500/50MCG
     Dates: start: 20111012
  3. CIPRO [Suspect]
     Indication: PRODUCT USED FOR UNKNOWN INDICATION
  4. ZITHROMAX [Suspect]
     Indication: PRODUCT USED FOR UNKNOWN INDICATION

REACTIONS (28)
  - Polymyositis [Unknown]
  - Nervous system disorder [Unknown]
  - Otitis media acute [Unknown]
  - Bronchitis [Unknown]
  - Ear canal stenosis [Unknown]
  - Increased upper airway secretion [Unknown]
  - Ill-defined disorder [Unknown]
  - Hypersensitivity [Unknown]
  - Herpes zoster [Unknown]
  - Rhinitis allergic [Unknown]
  - Rheumatoid arthritis [Unknown]
  - Myalgia [Unknown]
  - Myositis [Unknown]
  - Calcium metabolism disorder [Unknown]
  - Malaise [Unknown]
  - Ear pain [Not Recovered/Not Resolved]
  - Cough [Not Recovered/Not Resolved]
  - Ear canal erythema [Unknown]
  - Oedema [Unknown]
  - Pharyngeal erythema [Unknown]
  - Effusion [Unknown]
  - Ear discomfort [Unknown]
  - Pharyngeal disorder [Unknown]
  - Dyspnoea [Unknown]
  - Productive cough [Unknown]
  - Drug dose omission [Unknown]
  - Secretion discharge [Unknown]
  - Apnoea [Unknown]
